FAERS Safety Report 4668391-4 (Version None)
Quarter: 2005Q2

REPORT INFORMATION
  Report Type: 
  Country: None (occurrence: None)
  Receive Date: 20050518
  Receipt Date: 20050427
  Transmission Date: 20051028
  Serious: No
  Sender: FDA-Public Use
  Company Number: B0359623A

PATIENT
  Sex: Male

DRUGS (3)
  1. PAXIL [Suspect]
     Dosage: UNKNOWN
     Route: 065
     Dates: start: 19990101
  2. DOTHIEPIN HYDROCHLORIDE [Concomitant]
  3. NEFAZODONE HCL [Concomitant]

REACTIONS (5)
  - AGGRESSION [None]
  - DRUG WITHDRAWAL SYNDROME [None]
  - ERECTILE DYSFUNCTION [None]
  - SELF ESTEEM DECREASED [None]
  - SUICIDE ATTEMPT [None]
